FAERS Safety Report 4268757-0 (Version None)
Quarter: 2004Q1

REPORT INFORMATION
  Report Type: 
  Country: None (occurrence: None)
  Receive Date: 20040112
  Receipt Date: 20040112
  Transmission Date: 20041129
  Serious: Yes (Other)
  Sender: FDA-Public Use
  Company Number: None

PATIENT
  Age: 50 Year
  Sex: Male
  Weight: 77.5651 kg

DRUGS (12)
  1. FUZEON [Suspect]
     Indication: HIV INFECTION
     Dosage: 90 MG Q 12 SQ
     Route: 058
     Dates: start: 20030707, end: 20040109
  2. AGGENERASE [Concomitant]
  3. ZIAGEN [Concomitant]
  4. EPIVIR [Concomitant]
  5. NORVIR [Concomitant]
  6. BIAXIN [Concomitant]
  7. CEPTRA [Concomitant]
  8. ACYCLOVIR [Concomitant]
  9. DIFLUCAN [Concomitant]
  10. VIDEX [Concomitant]
  11. PIROXICAM [Concomitant]
  12. GLIPIZIDE [Concomitant]

REACTIONS (2)
  - AGGRESSION [None]
  - HEART RATE INCREASED [None]
